FAERS Safety Report 23113507 (Version 1)
Quarter: 2023Q4

REPORT INFORMATION
  Report Type: Report from Study
  Country: US (occurrence: US)
  Receive Date: 20231027
  Receipt Date: 20231027
  Transmission Date: 20240109
  Serious: Yes (Other)
  Sender: FDA-Public Use
  Company Number: US-ABBVIE-5323391

PATIENT
  Age: 70 Year
  Sex: Female
  Weight: 81.65 kg

DRUGS (1)
  1. HUMIRA [Suspect]
     Active Substance: ADALIMUMAB
     Indication: Psoriasis
     Dosage: CITRATE FREE?STRENGTH: 40 MG
     Route: 058
     Dates: start: 20220608

REACTIONS (1)
  - Lichen sclerosus [Recovering/Resolving]

NARRATIVE: CASE EVENT DATE: 20230107
